FAERS Safety Report 19656416 (Version 1)
Quarter: 2021Q3

REPORT INFORMATION
  Report Type: Spontaneous
  Country: US (occurrence: US)
  Receive Date: 20210804
  Receipt Date: 20210804
  Transmission Date: 20211014
  Serious: Yes (Hospitalization, Other)
  Sender: FDA-Public Use
  Company Number: US-ABBVIE-21K-163-4014343-00

PATIENT
  Sex: Female

DRUGS (1)
  1. ORILISSA [Suspect]
     Active Substance: ELAGOLIX SODIUM
     Indication: ENDOMETRIOSIS
     Route: 048
     Dates: start: 202101

REACTIONS (18)
  - Vital functions abnormal [Unknown]
  - Vomiting [Unknown]
  - Chest pain [Unknown]
  - Insomnia [Unknown]
  - Dizziness [Unknown]
  - Hypersomnia [Unknown]
  - Hypothalamo-pituitary disorder [Unknown]
  - Endometriosis [Unknown]
  - Respiratory arrest [Unknown]
  - Menstruation normal [Unknown]
  - Blood potassium decreased [Unknown]
  - Loss of consciousness [Unknown]
  - Pain [Unknown]
  - Headache [Unknown]
  - Nephrolithiasis [Unknown]
  - Dyspnoea [Unknown]
  - Thirst [Unknown]
  - Paraesthesia [Unknown]

NARRATIVE: CASE EVENT DATE: 2021
